FAERS Safety Report 4643087-3 (Version None)
Quarter: 2005Q2

REPORT INFORMATION
  Report Type: 
  Country: None (occurrence: None)
  Receive Date: 20050421
  Receipt Date: 20050411
  Transmission Date: 20051028
  Serious: Yes (Other)
  Sender: FDA-Public Use
  Company Number: 2005058442

PATIENT
  Age: 49 Year
  Sex: Female

DRUGS (1)
  1. BEXTRA [Suspect]
     Indication: POST PROCEDURAL PAIN
     Dosage: 40 MG (40 MG, 1 IN 1 D), ORAL
     Route: 048
     Dates: start: 20050408, end: 20050409

REACTIONS (3)
  - DIZZINESS [None]
  - DYSGEUSIA [None]
  - SKIN EXFOLIATION [None]
